FAERS Safety Report 4751153-7 (Version None)
Quarter: 2005Q3

REPORT INFORMATION
  Report Type: 
  Country: None (occurrence: None)
  Receive Date: 20050824
  Receipt Date: 20050818
  Transmission Date: 20060218
  Serious: Yes (Other)
  Sender: FDA-Public Use
  Company Number: 2005UW12321

PATIENT
  Sex: Male
  Weight: 79.4 kg

DRUGS (3)
  1. NEXIUM [Suspect]
     Indication: BARRETT'S OESOPHAGUS
     Route: 048
     Dates: start: 19990101
  2. PRILOSEC OTC [Concomitant]
     Dosage: OCCASIONALLY
  3. VITAMIN SUPPLEMENTS [Concomitant]

REACTIONS (3)
  - ANGINA PECTORIS [None]
  - DIZZINESS [None]
  - VENTRICULAR EXTRASYSTOLES [None]
